FAERS Safety Report 6967572-4 (Version None)
Quarter: 2010Q3

REPORT INFORMATION
  Report Type: 
  Country: None (occurrence: None)
  Receive Date: 20100901
  Receipt Date: 20100818
  Transmission Date: 20110219
  Serious: Yes (Hospitalization)
  Sender: FDA-Public Use
  Company Number: 1000015894

PATIENT
  Age: 64 Year
  Sex: Male

DRUGS (11)
  1. ESCITALOPRAM [Suspect]
     Dosage: 20 MG (20 MG,  1 IN 1 D), ORAL
     Route: 048
  2. KARDEGIC [Suspect]
     Dosage: ORAL
     Route: 048
  3. VICTOZA [Suspect]
     Dosage: 2000 IU INTERNATION UNITS (1000 IU,2 IN 1 D), SUBCUTANEOUS
     Route: 058
     Dates: start: 20100707, end: 20100801
  4. ALLOPURINOL [Concomitant]
  5. SIMVASTATIN [Concomitant]
  6. LERCANIDIPINE [Concomitant]
  7. COAPROVEL [Concomitant]
  8. GLUCOR [Concomitant]
  9. JANUVIA [Concomitant]
  10. COMPETACT [Concomitant]
  11. GLUCOPHAGE [Concomitant]

REACTIONS (1)
  - MUSCLE HAEMORRHAGE [None]
